FAERS Safety Report 25916489 (Version 1)
Quarter: 2025Q4

REPORT INFORMATION
  Report Type: Spontaneous
  Country: US (occurrence: US)
  Receive Date: 20251014
  Receipt Date: 20251014
  Transmission Date: 20260117
  Serious: Yes (Other)
  Sender: ROCHE
  Company Number: US-ROCHE-10000402528

PATIENT
  Age: 83 Year
  Sex: Female

DRUGS (2)
  1. ACTEMRA ACTPEN [Suspect]
     Active Substance: TOCILIZUMAB
     Indication: Rheumatoid arthritis
     Route: 058
     Dates: start: 2023
  2. ACTEMRA ACTPEN [Suspect]
     Active Substance: TOCILIZUMAB
     Dosage: STRENGTH: 162 MG/0.9 ML
     Route: 058
     Dates: start: 202211

REACTIONS (7)
  - Wrong technique in product usage process [Unknown]
  - Product quality issue [Unknown]
  - Confusional state [Not Recovered/Not Resolved]
  - Memory impairment [Not Recovered/Not Resolved]
  - Blindness [Unknown]
  - Drug delivery system malfunction [Unknown]
  - Device difficult to use [Unknown]

NARRATIVE: CASE EVENT DATE: 20250709
